FAERS Safety Report 6433960-8 (Version None)
Quarter: 2009Q4

REPORT INFORMATION
  Report Type: 
  Country: None (occurrence: None)
  Receive Date: 20091110
  Receipt Date: 20091031
  Transmission Date: 20100525
  Serious: Yes (Hospitalization, Other)
  Sender: FDA-Public Use
  Company Number: US-AMGEN-QUU307905

PATIENT
  Sex: Female

DRUGS (2)
  1. ENBREL [Suspect]
     Indication: PSORIATIC ARTHROPATHY
     Route: 058
     Dates: start: 20040708
  2. UNSPECIFIED ANTINEOPLASTIC AGENT [Concomitant]

REACTIONS (20)
  - ARTHRITIS [None]
  - ARTHROPOD BITE [None]
  - ASTHENIA [None]
  - BACK INJURY [None]
  - BLOOD CHOLESTEROL INCREASED [None]
  - BLOOD TRIGLYCERIDES INCREASED [None]
  - COLONIC POLYP [None]
  - FALL [None]
  - FATIGUE [None]
  - HEPATITIS C [None]
  - HERNIA [None]
  - LOSS OF CONSCIOUSNESS [None]
  - NEOPLASM MALIGNANT [None]
  - NEOPLASM PROGRESSION [None]
  - PROCEDURAL COMPLICATION [None]
  - PSORIASIS [None]
  - PULMONARY EMBOLISM [None]
  - THYROID NEOPLASM [None]
  - WEIGHT INCREASED [None]
  - WHITE BLOOD CELL COUNT INCREASED [None]
